FAERS Safety Report 6387339-8 (Version None)
Quarter: 2009Q3

REPORT INFORMATION
  Report Type: 
  Country: None (occurrence: None)
  Receive Date: 20090930
  Receipt Date: 20090914
  Transmission Date: 20100115
  Serious: Yes (Other)
  Sender: FDA-Public Use
  Company Number: 2009AL002016

PATIENT
  Age: 77 Year
  Sex: Female

DRUGS (15)
  1. DIGOXIN [Suspect]
     Dosage: 0.25MG, DAILY, PO
     Route: 048
  2. LISINOPRIL [Concomitant]
  3. NIFEDICAL [Concomitant]
  4. METOPROLOL [Concomitant]
  5. LOVASTATIN [Concomitant]
  6. INSULIN [Concomitant]
  7. LEVOTHYROXINE SODIUM [Concomitant]
  8. LORAZEPAM [Concomitant]
  9. HUMULIN R [Concomitant]
  10. ALBUTEROL [Concomitant]
  11. XANAX [Concomitant]
  12. IPRATROPIUM [Concomitant]
  13. ASPIRIN [Concomitant]
  14. VIACTIV [Concomitant]
  15. NIFEDIPINE [Concomitant]

REACTIONS (17)
  - CAROTID ARTERY STENOSIS [None]
  - CONJUNCTIVAL ABRASION [None]
  - CONTUSION [None]
  - COUGH [None]
  - DISCOMFORT [None]
  - ECONOMIC PROBLEM [None]
  - EYE PAIN [None]
  - FACIAL BONES FRACTURE [None]
  - FALL [None]
  - FREQUENT BOWEL MOVEMENTS [None]
  - ILL-DEFINED DISORDER [None]
  - LACRIMATION INCREASED [None]
  - OROPHARYNGEAL PAIN [None]
  - PAIN [None]
  - PYREXIA [None]
  - SKELETAL INJURY [None]
  - SOCIAL PROBLEM [None]
